FAERS Safety Report 4684913-1 (Version None)
Quarter: 2005Q2

REPORT INFORMATION
  Report Type: 
  Country: None (occurrence: None)
  Receive Date: 20050606
  Receipt Date: 20050606
  Transmission Date: 20051028
  Serious: Yes (Hospitalization)
  Sender: FDA-Public Use
  Company Number: None

PATIENT
  Age: 67 Year

DRUGS (2)
  1. GOODY'S POWDERS [Suspect]
     Indication: PAIN
  2. GOODY'S POWDERS [Suspect]
     Indication: SOMNOLENCE

REACTIONS (3)
  - ANORECTAL DISORDER [None]
  - GASTRITIS EROSIVE [None]
  - GASTROINTESTINAL HAEMORRHAGE [None]
